FAERS Safety Report 20336450 (Version 19)
Quarter: 2025Q3

REPORT INFORMATION
  Report Type: Spontaneous
  Country: US (occurrence: US)
  Receive Date: 20220114
  Receipt Date: 20250805
  Transmission Date: 20251021
  Serious: Yes (Hospitalization, Other)
  Sender: PFIZER
  Company Number: US-PFIZER INC-202101408178

PATIENT
  Age: 55 Year
  Sex: Female

DRUGS (28)
  1. IBRANCE [Suspect]
     Active Substance: PALBOCICLIB
     Indication: Breast cancer female
     Route: 048
     Dates: start: 20200226
  2. IBRANCE [Suspect]
     Active Substance: PALBOCICLIB
     Route: 048
     Dates: start: 20200420
  3. IBRANCE [Suspect]
     Active Substance: PALBOCICLIB
     Route: 048
  4. IBRANCE [Suspect]
     Active Substance: PALBOCICLIB
     Route: 048
  5. ANASTROZOLE [Concomitant]
     Active Substance: ANASTROZOLE
  6. CYCLOBENZAPRINE [Concomitant]
     Active Substance: CYCLOBENZAPRINE
  7. IBUPROFEN [Concomitant]
     Active Substance: IBUPROFEN
  8. LASIX [Concomitant]
     Active Substance: FUROSEMIDE
  9. ONDANSETRON [Concomitant]
     Active Substance: ONDANSETRON
  10. PAIN RELIEF NOS [Concomitant]
     Active Substance: UNSPECIFIED INGREDIENT
  11. PROAIR HFA [Concomitant]
     Active Substance: ALBUTEROL SULFATE
  12. SILDENAFIL [Concomitant]
     Active Substance: SILDENAFIL
  13. SPIRONOLACTONE [Concomitant]
     Active Substance: SPIRONOLACTONE
  14. SPIRONOLACTONE [Concomitant]
     Active Substance: SPIRONOLACTONE
  15. VITAMIN D3 [Concomitant]
     Active Substance: CHOLECALCIFEROL
  16. VITAMIN D3 [Concomitant]
     Active Substance: CHOLECALCIFEROL
  17. ZYRTEC [Concomitant]
     Active Substance: CETIRIZINE HYDROCHLORIDE
  18. POTASSIUM CHLORIDE [Concomitant]
     Active Substance: POTASSIUM CHLORIDE
  19. POTASSIUM CHLORIDE [Concomitant]
     Active Substance: POTASSIUM CHLORIDE
  20. DEXAMETHASONE [Concomitant]
     Active Substance: DEXAMETHASONE
  21. ALBUTEROL\IPRATROPIUM [Concomitant]
     Active Substance: ALBUTEROL\IPRATROPIUM
  22. JARDIANCE [Concomitant]
     Active Substance: EMPAGLIFLOZIN
  23. NITROGLYCERIN [Concomitant]
     Active Substance: NITROGLYCERIN
     Route: 058
  24. OPSUMIT [Concomitant]
     Active Substance: MACITENTAN
  25. UPTRAVI [Concomitant]
     Active Substance: SELEXIPAG
  26. UPTRAVI [Concomitant]
     Active Substance: SELEXIPAG
  27. VITAMIN B12 [Concomitant]
     Active Substance: CYANOCOBALAMIN
  28. IPRATROPIUM [Concomitant]
     Active Substance: IPRATROPIUM

REACTIONS (11)
  - Pneumonia [Recovered/Resolved]
  - COVID-19 [Recovered/Resolved]
  - Peripheral swelling [Unknown]
  - Fluid retention [Unknown]
  - Pulmonary oedema [Unknown]
  - Pneumonia [Not Recovered/Not Resolved]
  - Dyspnoea [Not Recovered/Not Resolved]
  - Neutropenia [Unknown]
  - Cardiac failure congestive [Unknown]
  - White blood cell count decreased [Unknown]
  - Product dose omission issue [Unknown]
